FAERS Safety Report 9173663 (Version 1)
Quarter: 2013Q1

REPORT INFORMATION
  Report Type: Spontaneous
  Country: US (occurrence: None)
  Receive Date: 20130318
  Receipt Date: 20130318
  Transmission Date: 20140127
  Serious: Yes (Life-Threatening, Other)
  Sender: FDA-Public Use
  Company Number: None

PATIENT
  Age: 66 Year
  Sex: 0
  Weight: 72.58 kg

DRUGS (2)
  1. VENLAFAXINE HCL [Suspect]
     Indication: DEPRESSION
     Route: 048
     Dates: start: 20110401, end: 20110530
  2. VENLAFAXINE HCL [Suspect]
     Indication: DEPRESSION
     Route: 048
     Dates: start: 20110420, end: 20110609

REACTIONS (3)
  - Depression [None]
  - Product substitution issue [None]
  - Death of relative [None]
